FAERS Safety Report 7291839-6 (Version None)
Quarter: 2011Q1

REPORT INFORMATION
  Report Type: 
  Country: None (occurrence: None)
  Receive Date: 20110214
  Receipt Date: 20110202
  Transmission Date: 20110831
  Serious: Yes (Hospitalization)
  Sender: FDA-Public Use
  Company Number: JP-ROCHE-728394

PATIENT
  Sex: Male
  Weight: 49 kg

DRUGS (19)
  1. XELODA [Suspect]
     Route: 048
     Dates: start: 20100702, end: 20100716
  2. XELODA [Suspect]
     Route: 048
     Dates: start: 20100816, end: 20100830
  3. OXALIPLATIN [Suspect]
     Route: 042
     Dates: start: 20100607, end: 20100607
  4. DEXAMETHASONE SODIUM PHOSPHATE [Suspect]
     Indication: PROPHYLAXIS
     Dosage: ROUTE: INTRAVENOUS (NOT OTHERWISE SPECIFIED)
     Route: 041
     Dates: start: 20100607
  5. XELODA [Suspect]
     Route: 048
     Dates: start: 20100705, end: 20100719
  6. OXALIPLATIN [Suspect]
     Route: 042
     Dates: start: 20100702, end: 20100702
  7. AVASTIN [Suspect]
     Route: 041
     Dates: start: 20100609, end: 20100609
  8. OXALIPLATIN [Suspect]
     Route: 042
     Dates: start: 20100705, end: 20100705
  9. OXALIPLATIN [Suspect]
     Route: 042
     Dates: start: 20100816, end: 20100816
  10. FERO-GRADUMET [Concomitant]
     Route: 048
     Dates: start: 20100622
  11. XELODA [Suspect]
     Indication: COLON CANCER METASTATIC
     Dosage: DRUG NAME:XELODA 300(CAPECITABINE)
     Route: 048
     Dates: start: 20100607, end: 20100618
  12. AVASTIN [Suspect]
     Route: 041
     Dates: start: 20100702, end: 20100702
  13. AVASTIN [Suspect]
     Route: 041
     Dates: start: 20100805, end: 20100805
  14. AVASTIN [Suspect]
     Indication: COLON CANCER METASTATIC
     Route: 041
     Dates: start: 20100607, end: 20100607
  15. AVASTIN [Suspect]
     Route: 041
     Dates: start: 20100705, end: 20100705
  16. OXALIPLATIN [Suspect]
     Indication: COLON CANCER METASTATIC
     Route: 042
     Dates: start: 20100609, end: 20100609
  17. DEXAMETHASONE [Suspect]
     Indication: PROPHYLAXIS
     Route: 048
     Dates: start: 20100608
  18. GASTER [Concomitant]
     Dosage: DOSE FORM: PERORAL AGENT
     Route: 048
     Dates: start: 20100630
  19. AVASTIN [Suspect]
     Route: 041
     Dates: start: 20100816, end: 20100816

REACTIONS (2)
  - GASTRIC ULCER HAEMORRHAGE [None]
  - GASTRIC ULCER [None]
